FAERS Safety Report 7404756-5 (Version None)
Quarter: 2011Q2

REPORT INFORMATION
  Report Type: 
  Country: None (occurrence: None)
  Receive Date: 20110411
  Receipt Date: 20110401
  Transmission Date: 20111010
  Serious: No
  Sender: FDA-Public Use
  Company Number: US-BIOGENIDEC-2011BI012562

PATIENT
  Sex: Female

DRUGS (1)
  1. AVONEX [Suspect]
     Indication: MULTIPLE SCLEROSIS
     Route: 030
     Dates: start: 20110311

REACTIONS (8)
  - HYPOTENSION [None]
  - FEELING ABNORMAL [None]
  - MULTIPLE SCLEROSIS [None]
  - MUSCULOSKELETAL CHEST PAIN [None]
  - PAIN [None]
  - HYPERTENSION [None]
  - HYPOVENTILATION [None]
  - PARALYSIS [None]
